FAERS Safety Report 10415545 (Version 1)
Quarter: 2014Q3

REPORT INFORMATION
  Report Type: Spontaneous
  Country: US (occurrence: None)
  Receive Date: 20140827
  Receipt Date: 20140827
  Transmission Date: 20150326
  Serious: No
  Sender: FDA-Public Use
  Company Number: None

PATIENT

DRUGS (1)
  1. ANDROGEL [Suspect]
     Active Substance: TESTOSTERONE

REACTIONS (4)
  - Chest pain [None]
  - Deep vein thrombosis [None]
  - Cardiac stress test abnormal [None]
  - Coronary artery stenosis [None]
